FAERS Safety Report 23895303 (Version 1)
Quarter: 2024Q2

REPORT INFORMATION
  Report Type: Spontaneous
  Country: US (occurrence: None)
  Receive Date: 20240524
  Receipt Date: 20240524
  Transmission Date: 20240715
  Serious: No
  Sender: FDA-Public Use
  Company Number: US-ROCHE-3534364

PATIENT
  Age: 16 Year
  Sex: Male
  Weight: 62.652 kg

DRUGS (4)
  1. ACTEMRA [Suspect]
     Active Substance: TOCILIZUMAB
     Indication: Uveitis
     Dosage: STARTED EITHER LATE -DEC-2023 OR EARLY -JAN-2024
     Route: 058
  2. ACTEMRA [Suspect]
     Active Substance: TOCILIZUMAB
  3. METHOTREXATE [Concomitant]
     Active Substance: METHOTREXATE
     Dosage: (6) 2.5 MG PILLS; STARTED BEFORE ACTEMRA
     Route: 048
  4. FOLIC ACID [Concomitant]
     Active Substance: FOLIC ACID
     Dosage: STARTED BEFORE ACTEMRA AT THE SAME TIME AS METHOTREXATE
     Route: 048

REACTIONS (4)
  - Off label use [Unknown]
  - Wrong technique in product usage process [Unknown]
  - Drug delivery system malfunction [Unknown]
  - No adverse event [Unknown]

NARRATIVE: CASE EVENT DATE: 20240325
